FAERS Safety Report 10959624 (Version 1)
Quarter: 2015Q1

REPORT INFORMATION
  Report Type: Other
  Country: GR (occurrence: GR)
  Receive Date: 20150327
  Receipt Date: 20150327
  Transmission Date: 20150721
  Serious: Yes (Other)
  Sender: FDA-Public Use
  Company Number: GR-ACTELION-A-CH2015-113355

PATIENT
  Age: 75 Year
  Sex: Female

DRUGS (10)
  1. ZAVESCA [Suspect]
     Active Substance: MIGLUSTAT
     Indication: GAUCHER^S DISEASE
     Dosage: UNK, TID
     Route: 048
     Dates: start: 200601, end: 200601
  2. ZAVESCA [Suspect]
     Active Substance: MIGLUSTAT
     Dosage: UNK UNK, OD
     Route: 048
     Dates: start: 200510
  3. DILATREND [Concomitant]
     Active Substance: CARVEDILOL
  4. PANCORAN [Concomitant]
  5. RENITEC [Concomitant]
     Active Substance: ENALAPRIL MALEATE
  6. GLUCOPHAGE [Concomitant]
     Active Substance: METFORMIN HYDROCHLORIDE
  7. SIBELIUM [Concomitant]
     Active Substance: FLUNARIZINE
  8. LASIX [Concomitant]
     Active Substance: FUROSEMIDE
  9. ZAVESCA [Suspect]
     Active Substance: MIGLUSTAT
     Dosage: UNK UNK, BID
     Route: 048
     Dates: start: 200512
  10. FILICINE [Concomitant]

REACTIONS (3)
  - Fall [Unknown]
  - Tremor [Unknown]
  - Injury [Unknown]

NARRATIVE: CASE EVENT DATE: 20060130
